FAERS Safety Report 8615651-8 (Version None)
Quarter: 2012Q3

REPORT INFORMATION
  Report Type: 
  Country: None (occurrence: None)
  Receive Date: 20120823
  Receipt Date: 20120816
  Transmission Date: 20120928
  Serious: Yes (Life-Threatening)
  Sender: FDA-Public Use
  Company Number: FR-BRISTOL-MYERS SQUIBB COMPANY-16864548

PATIENT
  Age: 49 Year
  Sex: Male

DRUGS (4)
  1. ALPRAZOLAM [Suspect]
     Route: 048
     Dates: end: 20120701
  2. MIRTAZAPINE [Suspect]
     Dosage: FORMULATION: TABS
     Route: 048
  3. ABILIFY [Suspect]
     Indication: SCHIZOPHRENIA
     Dosage: UNTIL JUL12
     Route: 048
  4. MIANSERIN HCL [Suspect]
     Dates: end: 20120701

REACTIONS (3)
  - NEUROLEPTIC MALIGNANT SYNDROME [None]
  - CYTOLYTIC HEPATITIS [None]
  - DRUG WITHDRAWAL SYNDROME [None]
